FAERS Safety Report 8949081 (Version 1)
Quarter: 2012Q4

REPORT INFORMATION
  Report Type: 
  Country: US (occurrence: US)
  Receive Date: 20121206
  Receipt Date: 20121206
  Transmission Date: 20130627
  Serious: No
  Sender: FDA-Public Use
  Company Number: US-PFIZER INC-2012303957

PATIENT
  Age: 70 Year
  Sex: Female

DRUGS (2)
  1. PREMPRO [Suspect]
     Dosage: 0.3/1.5mg, UNK
  2. PROGESTERONE [Suspect]
     Dosage: 100 mg, UNK

REACTIONS (1)
  - Hot flush [Unknown]
